FAERS Safety Report 6644419-7 (Version None)
Quarter: 2010Q1

REPORT INFORMATION
  Report Type: 
  Country: None (occurrence: None)
  Receive Date: 20100322
  Receipt Date: 20100312
  Transmission Date: 20100710
  Serious: Yes (Hospitalization)
  Sender: FDA-Public Use
  Company Number: CH-ROCHE-688641

PATIENT
  Sex: Female

DRUGS (5)
  1. TRASTUZUMAB [Suspect]
     Dosage: DATE OF LAST DOSE PRIOR TO SAE: 04 FEB 2010.  ACTION TAKEN: THERAPY TEMPORARILY INTERRUPTED.
     Route: 042
     Dates: start: 20080904
  2. LETROZOLE [Suspect]
     Dosage: LAST DOSE PRIOR TO SAE: 02 MARCH 2010.  DRUG NAME: FEMARA.
     Route: 048
     Dates: start: 20090518
  3. DAFALGAN [Concomitant]
     Dosage: FREQUENCY: AS NECESSARY.
     Route: 048
     Dates: start: 20090611
  4. ANAFRANIL [Concomitant]
     Route: 048
     Dates: start: 20000530
  5. TORSEMIDE [Concomitant]
     Route: 048
     Dates: start: 20090406

REACTIONS (1)
  - HERPES ZOSTER [None]
